FAERS Safety Report 7051755-1 (Version None)
Quarter: 2010Q4

REPORT INFORMATION
  Report Type: 
  Country: None (occurrence: None)
  Receive Date: 20101019
  Receipt Date: 20101005
  Transmission Date: 20110411
  Serious: Yes (Hospitalization)
  Sender: FDA-Public Use
  Company Number: PHHY2010FR67296

PATIENT
  Sex: Female

DRUGS (3)
  1. AREDIA [Suspect]
     Indication: METASTASES TO BONE
     Dosage: UNK
     Route: 042
     Dates: start: 20010101
  2. ZOMETA [Suspect]
     Dosage: 1 DF, EVERY 4 WEEKS
     Route: 042
     Dates: start: 20040301
  3. HORMONES NOS [Concomitant]
     Dosage: UNK
     Dates: start: 20011101

REACTIONS (5)
  - BONE GRAFT [None]
  - DEVICE BREAKAGE [None]
  - FEMUR FRACTURE [None]
  - FRACTURE DELAYED UNION [None]
  - OSTEOSYNTHESIS [None]
